FAERS Safety Report 9203425 (Version 1)
Quarter: 2013Q1

REPORT INFORMATION
  Report Type: Spontaneous
  Country: US (occurrence: None)
  Receive Date: 20120709
  Receipt Date: 20120709
  Transmission Date: 20140127
  Serious: No
  Sender: FDA-Public Use
  Company Number: 2012HGS-003700

PATIENT
  Age: 62 Year
  Sex: Female
  Weight: 131.54 kg

DRUGS (7)
  1. BENLYSTA [Suspect]
     Indication: SYSTEMIC LUPUS ERYTHEMATOSUS
     Dosage: 1 IN 28 D
     Route: 041
     Dates: start: 20120523
  2. PLAQUENIL (HYDROXYCHLOROQUINE PHOSPHATE) (HYDROXYCHLOROQUINE PHOSPHATE) [Concomitant]
  3. FLUOXETINE (FLUOXETINE) (FLUOXETINE) [Concomitant]
  4. GABAPENTIN (GABAPENTIN) (GABAPENTIN) [Concomitant]
  5. NAPROXEN (NAPROXEN) (NAPROXEN) [Concomitant]
  6. METAMUCIL (PLANTAGO OVATA) (PLANTAGO OVATA) [Concomitant]
  7. SALINE NASAL SPRAY (SODIUM CHLORIDE) (SODIUM CHLORIDE) [Concomitant]

REACTIONS (3)
  - Dizziness [None]
  - Insomnia [None]
  - Diarrhoea [None]
